FAERS Safety Report 14371550 (Version 4)
Quarter: 2018Q2

REPORT INFORMATION
  Report Type: Report from Study
  Country: US (occurrence: US)
  Receive Date: 20180110
  Receipt Date: 20180427
  Transmission Date: 20180711
  Serious: Yes (Life-Threatening, Hospitalization, Other)
  Sender: FDA-Public Use
  Company Number: PHEH2018US001153

PATIENT
  Sex: Female

DRUGS (1)
  1. GILENYA [Suspect]
     Active Substance: FINGOLIMOD HYDROCHLORIDE
     Indication: MULTIPLE SCLEROSIS
     Dosage: 0.5 MG, QD
     Route: 048

REACTIONS (16)
  - Brain injury [Unknown]
  - Coma [Unknown]
  - Hip fracture [Unknown]
  - Pain [Unknown]
  - Arthralgia [Unknown]
  - Arthropod sting [Unknown]
  - Glaucoma [Unknown]
  - Femur fracture [Unknown]
  - Oropharyngeal pain [Unknown]
  - Memory impairment [Unknown]
  - Feeling abnormal [Unknown]
  - Amnesia [Unknown]
  - Nausea [Unknown]
  - Headache [Unknown]
  - Bone disorder [Unknown]
  - Fall [Unknown]

NARRATIVE: CASE EVENT DATE: 2016
